FAERS Safety Report 16775031 (Version 1)
Quarter: 2019Q3

REPORT INFORMATION
  Report Type: Spontaneous
  Country: US (occurrence: US)
  Receive Date: 20190905
  Receipt Date: 20190905
  Transmission Date: 20191005
  Serious: No
  Sender: FDA-Public Use
  Company Number: US-009507513-1908USA008168

PATIENT
  Sex: Female

DRUGS (2)
  1. TEMODAR [Suspect]
     Active Substance: TEMOZOLOMIDE
     Indication: BRAIN NEOPLASM MALIGNANT
     Dosage: 100 MG (MILLIGRAM), TAKE 2 CAPSULES BY MOUTH ON AN EMPTY STOMACH FOR 5 DAYS EVERY 28 DAYS
     Route: 048
     Dates: start: 201905
  2. TEMODAR [Suspect]
     Active Substance: TEMOZOLOMIDE
     Dosage: 140 MG (MILLIGRAM), TAKE 1 CAPSULE BY MOUTH ON AN EMPTY STOMACH FOR 5 DAYS EVERY 28 DAYS
     Route: 048
     Dates: start: 201905

REACTIONS (1)
  - Fatigue [Unknown]

NARRATIVE: CASE EVENT DATE: 2019
